FAERS Safety Report 6021106-X (Version None)
Quarter: 2008Q4

REPORT INFORMATION
  Report Type: 
  Country: None (occurrence: None)
  Receive Date: 20081229
  Receipt Date: 20081215
  Transmission Date: 20090506
  Serious: Yes (Other)
  Sender: FDA-Public Use
  Company Number: CH-PFIZER INC-2008153485

PATIENT

DRUGS (3)
  1. NEURONTIN [Suspect]
     Indication: PAIN
     Dosage: 1000 MG, 3X/DAY
     Route: 048
     Dates: start: 20080906
  2. PROGRAF [Suspect]
     Dosage: 1.5 MG, 2X/DAY
     Route: 048
     Dates: end: 20081124
  3. TRYPTIZOL [Suspect]
     Indication: PAIN
     Dosage: 50 MG, 1X/DAY
     Route: 048
     Dates: start: 20080915

REACTIONS (1)
  - HEPATOCELLULAR INJURY [None]
